FAERS Safety Report 17706184 (Version 3)
Quarter: 2021Q3

REPORT INFORMATION
  Report Type: Spontaneous
  Country: CA (occurrence: CA)
  Receive Date: 20200424
  Receipt Date: 20210804
  Transmission Date: 20211014
  Serious: Yes (Other)
  Sender: FDA-Public Use
  Company Number: CA-SAMSUNG BIOEPIS-SB-2020-13617

PATIENT
  Age: 54 Year
  Sex: Female
  Weight: 50 kg

DRUGS (7)
  1. OXAZEPAM. [Concomitant]
     Active Substance: OXAZEPAM
     Indication: PRODUCT USED FOR UNKNOWN INDICATION
     Route: 065
  2. BUDESONIDE. [Concomitant]
     Active Substance: BUDESONIDE
     Indication: PRODUCT USED FOR UNKNOWN INDICATION
     Dosage: UNKNOWN
     Route: 065
  3. FERROUS SULFATE. [Concomitant]
     Active Substance: FERROUS SULFATE
     Indication: PRODUCT USED FOR UNKNOWN INDICATION
     Route: 065
  4. PROPRANOLOL HYDROCHLORIDE. [Concomitant]
     Active Substance: PROPRANOLOL HYDROCHLORIDE
     Indication: PRODUCT USED FOR UNKNOWN INDICATION
     Route: 065
  5. PREDNISONE. [Concomitant]
     Active Substance: PREDNISONE
     Indication: PRODUCT USED FOR UNKNOWN INDICATION
     Dosage: UNKNOWN
     Route: 065
  6. INFLIXIMAB [Suspect]
     Active Substance: INFLIXIMAB
     Route: 042
  7. INFLIXIMAB [Suspect]
     Active Substance: INFLIXIMAB
     Indication: COLITIS ULCERATIVE
     Route: 042

REACTIONS (18)
  - Migraine [Recovered/Resolved]
  - Stress [Not Recovered/Not Resolved]
  - Sinonasal obstruction [Not Recovered/Not Resolved]
  - Off label use [Not Recovered/Not Resolved]
  - Dyspnoea [Recovered/Resolved]
  - Infection [Not Recovered/Not Resolved]
  - Rhinorrhoea [Not Recovered/Not Resolved]
  - Therapeutic response shortened [Not Recovered/Not Resolved]
  - Condition aggravated [Not Recovered/Not Resolved]
  - Nasopharyngitis [Recovered/Resolved]
  - Sinusitis [Not Recovered/Not Resolved]
  - Epistaxis [Not Recovered/Not Resolved]
  - Inappropriate schedule of product administration [Unknown]
  - Incorrect dose administered [Not Recovered/Not Resolved]
  - Blood pressure fluctuation [Recovered/Resolved]
  - Fatigue [Not Recovered/Not Resolved]
  - Drug level increased [Not Recovered/Not Resolved]
  - Blood pressure increased [Not Recovered/Not Resolved]
